FAERS Safety Report 5393035-6 (Version None)
Quarter: 2007Q3

REPORT INFORMATION
  Report Type: 
  Country: None (occurrence: None)
  Receive Date: 20070719
  Receipt Date: 20070705
  Transmission Date: 20080115
  Serious: Yes (Hospitalization, Other)
  Sender: FDA-Public Use
  Company Number: L07-POL-02553-01

PATIENT
  Age: 71 Year
  Sex: Female

DRUGS (6)
  1. CARBAMAZEPINE [Suspect]
     Dosage: 1000 MG QD
  2. LITHIUM CARBONATE [Suspect]
  3. NAPROXEN [Suspect]
     Indication: BONE PAIN
     Dosage: 2000 MG QHS
  4. DICLOFENAC SODIUM [Suspect]
     Indication: BONE PAIN
     Dosage: 200 MG QHS
  5. FUROSEMIDE [Suspect]
  6. DIGOXIN [Suspect]

REACTIONS (26)
  - ALTERED STATE OF CONSCIOUSNESS [None]
  - ANAEMIA [None]
  - ASTHENIA [None]
  - BLOOD SODIUM DECREASED [None]
  - BONE PAIN [None]
  - BRADYCARDIA [None]
  - CEREBROVASCULAR DISORDER [None]
  - COMA [None]
  - CONTUSION [None]
  - DEHYDRATION [None]
  - DIZZINESS [None]
  - DRUG INEFFECTIVE [None]
  - DRUG INTERACTION [None]
  - GENERAL PHYSICAL HEALTH DETERIORATION [None]
  - HYPOREFLEXIA [None]
  - HYPOTONIA [None]
  - MEMORY IMPAIRMENT [None]
  - MENTAL DISORDER [None]
  - MOBILITY DECREASED [None]
  - MUSCLE TWITCHING [None]
  - ORAL INTAKE REDUCED [None]
  - RALES [None]
  - SOMNOLENCE [None]
  - THERAPEUTIC AGENT TOXICITY [None]
  - TREMOR [None]
  - URINARY TRACT INFECTION [None]
